FAERS Safety Report 7675636-5 (Version None)
Quarter: 2011Q3

REPORT INFORMATION
  Report Type: 
  Country: None (occurrence: None)
  Receive Date: 20110810
  Receipt Date: 20110805
  Transmission Date: 20111222
  Serious: Yes (Hospitalization)
  Sender: FDA-Public Use
  Company Number: GB-PFIZER INC-2011108616

PATIENT
  Age: 58 Year
  Sex: Female
  Weight: 65 kg

DRUGS (7)
  1. ACETAMINOPHEN AND CODEINE PHOSPHATE [Concomitant]
     Dosage: 2 DF, 4X/DAY
  2. FLUOXETINE HYDROCHLORIDE [Concomitant]
     Dosage: 20 MG, 1X/DAY
  3. CARBAMAZEPINE [Concomitant]
     Dosage: 100 MG, UNK
  4. SALBUTAMOL [Concomitant]
     Dosage: 200 UG, AS NEEDED
     Route: 055
  5. FLUCONAZOLE [Suspect]
     Indication: CANDIDIASIS
     Dosage: 150 MG, UNK
     Dates: start: 20110111
  6. CANDESARTAN CILEXETIL [Concomitant]
     Dosage: 8 MG, 1X/DAY
  7. SERETIDE [Concomitant]
     Dosage: 2 DF, 2X/DAY
     Route: 055

REACTIONS (6)
  - FATIGUE [None]
  - LIVER FUNCTION TEST ABNORMAL [None]
  - PRURITUS [None]
  - JAUNDICE [None]
  - URINE COLOUR ABNORMAL [None]
  - FAECES PALE [None]
